FAERS Safety Report 5100506-6 (Version None)
Quarter: 2006Q3

REPORT INFORMATION
  Report Type: 
  Country: None (occurrence: None)
  Receive Date: 20060907
  Receipt Date: 20060907
  Transmission Date: 20061208
  Serious: No
  Sender: FDA-Public Use
  Company Number: None

PATIENT
  Sex: Male

DRUGS (1)
  1. OPTIRAY 350 [Suspect]
     Indication: URTICARIA
     Dosage: 100 CC
     Dates: start: 20060825

REACTIONS (2)
  - PRURITUS [None]
  - URTICARIA [None]
